FAERS Safety Report 9355303 (Version 1)
Quarter: 2013Q2

REPORT INFORMATION
  Report Type: Spontaneous
  Country: US (occurrence: US)
  Receive Date: 20130619
  Receipt Date: 20130619
  Transmission Date: 20140414
  Serious: Yes (Other)
  Sender: FDA-Public Use
  Company Number: US-ACCORD-018071

PATIENT
  Age: 58 Year
  Sex: Male

DRUGS (2)
  1. NALTREXONE [Suspect]
     Indication: PATHOLOGICAL GAMBLING
     Dosage: INCREASED TO 200 MG/DAY
     Route: 048
  2. PRAMIPEXOLE [Concomitant]
     Indication: RESTLESS LEGS SYNDROME

REACTIONS (3)
  - Drug ineffective [Unknown]
  - Treatment noncompliance [Unknown]
  - Off label use [Unknown]
